FAERS Safety Report 5951228-0 (Version None)
Quarter: 2008Q4

REPORT INFORMATION
  Report Type: 
  Country: None (occurrence: None)
  Receive Date: 20081022
  Receipt Date: 20080818
  Transmission Date: 20090506
  Serious: No
  Sender: FDA-Public Use
  Company Number: SPV1-2008-01762

PATIENT
  Age: 6 Year
  Sex: Female
  Weight: 16.8 kg

DRUGS (1)
  1. VYVANSE [Suspect]
     Indication: ATTENTION DEFICIT/HYPERACTIVITY DISORDER
     Dosage: 70 MG, 1X/DAY: QD, ORAL
     Route: 048
     Dates: start: 20080601, end: 20080801

REACTIONS (2)
  - MOOD SWINGS [None]
  - ONYCHOPHAGIA [None]
